FAERS Safety Report 7095171-5 (Version None)
Quarter: 2010Q4

REPORT INFORMATION
  Report Type: 
  Country: None (occurrence: None)
  Receive Date: 20101109
  Receipt Date: 20101109
  Transmission Date: 20110411
  Serious: No
  Sender: FDA-Public Use
  Company Number: None

PATIENT
  Age: 35 Year
  Sex: Male
  Weight: 48.5349 kg

DRUGS (1)
  1. MELOXICAM [Suspect]
     Indication: PAIN
     Dosage: 7.5 MG EVERY DAY PO
     Route: 048
     Dates: start: 20100527, end: 20100527

REACTIONS (3)
  - DIZZINESS [None]
  - NAUSEA [None]
  - VERTIGO [None]
